FAERS Safety Report 6036925-3 (Version None)
Quarter: 2009Q1

REPORT INFORMATION
  Report Type: 
  Country: None (occurrence: None)
  Receive Date: 20090114
  Receipt Date: 20081229
  Transmission Date: 20090719
  Serious: Yes (Other)
  Sender: FDA-Public Use
  Company Number: US-PFIZER INC-2007091670

PATIENT
  Sex: Female
  Weight: 72.6 kg

DRUGS (13)
  1. CHANTIX [Suspect]
     Dosage: QD:EVERY DAY
     Route: 048
     Dates: start: 20070901
  2. ZOLOFT [Suspect]
     Dates: start: 20050101
  3. SERTRALINE HCL [Suspect]
     Dates: end: 20071001
  4. WELLBUTRIN [Suspect]
     Indication: DEPRESSION
     Dates: start: 20050101, end: 20071001
  5. XANAX [Concomitant]
  6. AMBIEN [Concomitant]
     Indication: INSOMNIA
  7. VYTORIN [Concomitant]
  8. LEVOXYL [Concomitant]
     Indication: HYPOTHYROIDISM
  9. PROPRANOLOL [Concomitant]
  10. NEXIUM [Concomitant]
  11. ASPIRIN [Concomitant]
  12. CYMBALTA [Concomitant]
  13. ALL OTHER THERAPEUTIC PRODUCTS [Concomitant]
     Indication: BLOOD CHOLESTEROL INCREASED

REACTIONS (5)
  - HYPERTENSION [None]
  - HYPOTHYROIDISM [None]
  - INSOMNIA [None]
  - PANIC ATTACK [None]
  - SUICIDAL IDEATION [None]
